FAERS Safety Report 7552641-0 (Version None)
Quarter: 2011Q2

REPORT INFORMATION
  Report Type: 
  Country: None (occurrence: None)
  Receive Date: 20110616
  Receipt Date: 20110613
  Transmission Date: 20111010
  Serious: Yes (Other)
  Sender: FDA-Public Use
  Company Number: GB-UCBSA-034505

PATIENT
  Sex: Female
  Weight: 62 kg

DRUGS (4)
  1. VIMPAT [Suspect]
     Dosage: VIA GASTROSTOMY
     Dates: start: 20110101, end: 20110101
  2. VIMPAT [Suspect]
     Indication: EPILEPSY
     Dosage: 13.3 ML, VIA GASTROSTOMY
     Dates: start: 20110401, end: 20110101
  3. VIMPAT [Suspect]
     Dosage: VIA GASTROSTOMY
     Dates: start: 20110101, end: 20110101
  4. TOPIRAMATE [Concomitant]
     Dosage: ROUTE: VIA GASTROSTOMY
     Dates: start: 20060101

REACTIONS (11)
  - DIARRHOEA [None]
  - PRODUCT CONTAMINATION PHYSICAL [None]
  - HORDEOLUM [None]
  - MALAISE [None]
  - EPILEPSY [None]
  - ORAL MUCOSAL ERYTHEMA [None]
  - VOMITING [None]
  - EMOTIONAL DISTRESS [None]
  - IRRITABILITY [None]
  - POSTOPERATIVE WOUND INFECTION [None]
  - NAUSEA [None]
